FAERS Safety Report 7443352-0 (Version None)
Quarter: 2011Q2

REPORT INFORMATION
  Report Type: 
  Country: None (occurrence: None)
  Receive Date: 20110428
  Receipt Date: 20110419
  Transmission Date: 20111010
  Serious: Yes (Other)
  Sender: FDA-Public Use
  Company Number: PHHY2011BR33457

PATIENT
  Sex: Female

DRUGS (2)
  1. DIOVAN AMLO FIX [Suspect]
     Dosage: 3 DF, DAILY 160/5 MG
  2. DIOVAN AMLO FIX [Suspect]
     Dosage: 2 DF, DAILY 160/5 MG

REACTIONS (3)
  - HYPERTENSION [None]
  - MALAISE [None]
  - NEOPLASM MALIGNANT [None]
